FAERS Safety Report 18348081 (Version 3)
Quarter: 2020Q4

REPORT INFORMATION
  Report Type: Other
  Country: CO (occurrence: CO)
  Receive Date: 20201006
  Receipt Date: 20201104
  Transmission Date: 20210114
  Serious: Yes (Other)
  Sender: FDA-Public Use
  Company Number: CO-ROCHE-2690455

PATIENT
  Age: 25 Year
  Sex: Female

DRUGS (6)
  1. XOLAIR [Suspect]
     Active Substance: OMALIZUMAB
     Route: 058
  2. SERETIDE [Concomitant]
     Active Substance: FLUTICASONE PROPIONATE\SALMETEROL XINAFOATE
     Indication: ASTHMA
     Dosage: 250 MG, PRN
     Route: 048
  3. XOLAIR [Suspect]
     Active Substance: OMALIZUMAB
     Route: 058
     Dates: start: 201912
  4. XOLAIR [Suspect]
     Active Substance: OMALIZUMAB
     Route: 058
     Dates: start: 202001, end: 20200626
  5. XOLAIR [Suspect]
     Active Substance: OMALIZUMAB
     Route: 058
  6. XOLAIR [Suspect]
     Active Substance: OMALIZUMAB
     Indication: ASTHMA
     Route: 058
     Dates: start: 20181018

REACTIONS (13)
  - Abdominal pain [Unknown]
  - Fatigue [Recovered/Resolved]
  - Arthralgia [Unknown]
  - Hypotension [Unknown]
  - Hypersensitivity [Unknown]
  - Pyrexia [Unknown]
  - Abdominal pain upper [Recovered/Resolved]
  - Eye inflammation [Unknown]
  - Headache [Recovered/Resolved]
  - Asthenia [Unknown]
  - Asthmatic crisis [Unknown]
  - Pyrexia [Recovered/Resolved]
  - Bone pain [Recovered/Resolved]

NARRATIVE: CASE EVENT DATE: 202004
